FAERS Safety Report 10563164 (Version 1)
Quarter: 2014Q4

REPORT INFORMATION
  Report Type: Report from Study
  Country: CA (occurrence: CA)
  Receive Date: 20141104
  Receipt Date: 20141104
  Transmission Date: 20150529
  Serious: Yes (Hospitalization)
  Sender: FDA-Public Use
  Company Number: CA-JNJFOC-20141019385

PATIENT
  Age: 56 Year
  Sex: Female
  Weight: 90 kg

DRUGS (9)
  1. REMICADE [Suspect]
     Active Substance: INFLIXIMAB
     Indication: CROHN^S DISEASE
     Route: 042
     Dates: start: 200408
  2. LYRICA [Concomitant]
     Active Substance: PREGABALIN
     Dosage: 75
     Route: 065
  3. ADALAT CC [Concomitant]
     Active Substance: NIFEDIPINE
     Dosage: 30
     Route: 065
  4. FLURAZEPAM [Concomitant]
     Active Substance: FLURAZEPAM\FLURAZEPAM HYDROCHLORIDE
     Dosage: 30
     Route: 065
  5. CALCIUM [Concomitant]
     Active Substance: CALCIUM
     Route: 065
  6. CYMBALTA [Concomitant]
     Active Substance: DULOXETINE HYDROCHLORIDE
     Dosage: 60
     Route: 065
  7. ALTACE [Concomitant]
     Active Substance: RAMIPRIL
     Dosage: 2.5
     Route: 065
  8. LORAZEPAM. [Concomitant]
     Active Substance: LORAZEPAM
     Route: 065
  9. NASONEX [Concomitant]
     Active Substance: MOMETASONE FUROATE
     Dosage: AS NECESSARY
     Route: 065

REACTIONS (2)
  - Abdominal hernia [Unknown]
  - Intestinal resection [Recovering/Resolving]

NARRATIVE: CASE EVENT DATE: 20140821
